FAERS Safety Report 9849795 (Version 5)
Quarter: 2014Q4

REPORT INFORMATION
  Report Type: Report from Study
  Country: US (occurrence: US)
  Receive Date: 20140128
  Receipt Date: 20141006
  Transmission Date: 20150529
  Serious: Yes (Hospitalization)
  Sender: FDA-Public Use
  Company Number: US-SA-2014SA007747

PATIENT
  Age: 51 Year
  Sex: Male

DRUGS (2)
  1. AUBAGIO [Suspect]
     Active Substance: TERIFLUNOMIDE
     Indication: MULTIPLE SCLEROSIS
     Route: 048
     Dates: start: 20131230, end: 20140801
  2. AUBAGIO [Suspect]
     Active Substance: TERIFLUNOMIDE
     Indication: RELAPSING-REMITTING MULTIPLE SCLEROSIS
     Route: 048
     Dates: start: 20131230, end: 20140801

REACTIONS (29)
  - Respiratory disorder [Not Recovered/Not Resolved]
  - Dizziness [Not Recovered/Not Resolved]
  - Ear discomfort [Not Recovered/Not Resolved]
  - Tinnitus [Not Recovered/Not Resolved]
  - Abdominal discomfort [Recovering/Resolving]
  - Diarrhoea [Not Recovered/Not Resolved]
  - Malaise [Not Recovered/Not Resolved]
  - Alcohol intolerance [Recovered/Resolved]
  - Feeling abnormal [Recovered/Resolved]
  - Peripheral coldness [Recovered/Resolved]
  - Middle insomnia [Recovered/Resolved]
  - Dizziness [Recovered/Resolved]
  - Neoplasm [Unknown]
  - Activities of daily living impaired [Not Recovered/Not Resolved]
  - Multiple sclerosis [Recovered/Resolved]
  - Nasal congestion [Not Recovered/Not Resolved]
  - Balance disorder [Not Recovered/Not Resolved]
  - Acne [Recovered/Resolved]
  - Alopecia [Recovering/Resolving]
  - Blepharospasm [Not Recovered/Not Resolved]
  - Chest pain [Recovered/Resolved]
  - Depression [Recovered/Resolved]
  - Paraesthesia [Not Recovered/Not Resolved]
  - Nausea [Recovered/Resolved]
  - Feeling abnormal [Not Recovered/Not Resolved]
  - Dyspnoea [Recovered/Resolved]
  - Hypoaesthesia [Not Recovered/Not Resolved]
  - Chest discomfort [Not Recovered/Not Resolved]
  - Rash [Recovered/Resolved]

NARRATIVE: CASE EVENT DATE: 201401
